FAERS Safety Report 8012664-4 (Version None)
Quarter: 2011Q4

REPORT INFORMATION
  Report Type: 
  Country: None (occurrence: None)
  Receive Date: 20111229
  Receipt Date: 20111215
  Transmission Date: 20120403
  Serious: Yes (Other)
  Sender: FDA-Public Use
  Company Number: JP-BAYER-2011-111750

PATIENT
  Age: 4 Month
  Sex: Male

DRUGS (4)
  1. CARBENIN [Concomitant]
     Indication: MENINGITIS BACTERIAL
     Dosage: DAILY DOSE 1.28 G
     Route: 041
     Dates: start: 20111114, end: 20111212
  2. CLAFORAN [Concomitant]
     Indication: MENINGITIS BACTERIAL
     Dosage: DAILY DOSE 2.4 G
     Route: 042
     Dates: start: 20111114, end: 20111123
  3. CHLOROMYCETIN SUCCINATE [Concomitant]
     Indication: MENINGITIS BACTERIAL
     Dosage: DAILY DOSE 800 MG
     Route: 042
     Dates: start: 20111118, end: 20111206
  4. CIPROFLOXACIN HCL [Suspect]
     Indication: MENINGITIS BACTERIAL
     Dosage: DAILY DOSE 160 MG
     Route: 041
     Dates: start: 20111118, end: 20111212

REACTIONS (1)
  - CONVULSION [None]
